FAERS Safety Report 15112175 (Version 1)
Quarter: 2018Q3

REPORT INFORMATION
  Report Type: Spontaneous
  Country: US (occurrence: US)
  Receive Date: 20180705
  Receipt Date: 20180705
  Transmission Date: 20181010
  Serious: No
  Sender: FDA-Public Use
  Company Number: US-CIPHER-2018-US-000271

PATIENT
  Age: 63 Year
  Sex: Female

DRUGS (8)
  1. GRALISE [Suspect]
     Active Substance: GABAPENTIN
     Indication: FIBROMYALGIA
     Dosage: 600 MG, PO, TID
     Route: 048
     Dates: start: 20180125
  2. TRAMADOL HYDROCHLORIDE. [Suspect]
     Active Substance: TRAMADOL HYDROCHLORIDE
     Dosage: 50 MG, PO, Q8H
     Route: 048
     Dates: start: 201711
  3. DICLOFENAC SODIUM. [Concomitant]
     Active Substance: DICLOFENAC SODIUM
  4. DIAZEPAM. [Suspect]
     Active Substance: DIAZEPAM
     Indication: PRODUCT USED FOR UNKNOWN INDICATION
     Dosage: UNKNOWN
     Dates: end: 2018
  5. MELOXICAM. [Concomitant]
     Active Substance: MELOXICAM
  6. ESTRADIOL. [Concomitant]
     Active Substance: ESTRADIOL
  7. MONTELUKAST SODIUM. [Concomitant]
     Active Substance: MONTELUKAST SODIUM
  8. SERTRALINE HYDROCHLORIDE. [Concomitant]
     Active Substance: SERTRALINE HYDROCHLORIDE

REACTIONS (2)
  - Product use in unapproved indication [Unknown]
  - Dry mouth [Unknown]

NARRATIVE: CASE EVENT DATE: 20180125
